FAERS Safety Report 20834968 (Version 6)
Quarter: 2024Q1

REPORT INFORMATION
  Report Type: Spontaneous
  Country: US (occurrence: US)
  Receive Date: 20220516
  Receipt Date: 20240206
  Transmission Date: 20240410
  Serious: Yes (Other)
  Sender: FDA-Public Use
  Company Number: US-PFIZER INC-202200702269

PATIENT
  Age: 76 Year
  Sex: Female
  Weight: 73.03 kg

DRUGS (2)
  1. XELJANZ XR [Suspect]
     Active Substance: TOFACITINIB CITRATE
     Indication: Rheumatoid arthritis
     Dosage: 11 MG, 1X/DAY
  2. XELJANZ XR [Suspect]
     Active Substance: TOFACITINIB CITRATE
     Dosage: 11 MG, 1X/DAY, (ONE TABLET EVERY NIGHT )

REACTIONS (9)
  - Parkinson^s disease [Unknown]
  - Osteoporosis [Unknown]
  - Essential tremor [Unknown]
  - Arthropathy [Unknown]
  - Muscle disorder [Unknown]
  - Vitamin D decreased [Unknown]
  - Malaise [Unknown]
  - Dysgraphia [Unknown]
  - Body height decreased [Unknown]

NARRATIVE: CASE EVENT DATE: 20230101
